FAERS Safety Report 5869925-4 (Version None)
Quarter: 2008Q3

REPORT INFORMATION
  Report Type: 
  Country: None (occurrence: None)
  Receive Date: 20080904
  Receipt Date: 20080827
  Transmission Date: 20090109
  Serious: Yes (Other)
  Sender: FDA-Public Use
  Company Number: PHHY2008DE12803

PATIENT
  Sex: Female
  Weight: 91 kg

DRUGS (10)
  1. RASILEZ [Suspect]
     Indication: HYPERTENSION
     Dosage: 150 MG, QD
     Route: 048
     Dates: start: 20071126, end: 20071213
  2. KARVEZIDE [Concomitant]
     Indication: HYPERTENSION
     Dosage: 1 DF, QD
     Route: 048
     Dates: start: 20050101
  3. NORVASC [Concomitant]
     Indication: HYPERTENSION
     Dosage: 1 DF, BID
     Route: 048
     Dates: start: 20050101
  4. IRBESARTAN [Concomitant]
     Indication: HYPERTENSION
     Dosage: 0.5 DF, QD
     Route: 048
     Dates: start: 20050101
  5. TORSEMIDE [Concomitant]
     Indication: HYPERTENSION
     Dosage: 0.5 DF, BID
     Route: 048
     Dates: start: 20050101
  6. SIMVASTATIN [Concomitant]
     Dosage: UNK
  7. ASS ^CT-ARZNEIMITTEL^ [Concomitant]
     Dosage: 1 DF, QD
     Route: 048
  8. GLIMEPIRIDE [Concomitant]
     Dosage: UNK
     Route: 048
  9. KATADOLON [Concomitant]
     Dosage: UNK
  10. DICLOFENAC [Concomitant]
     Dosage: 1 DF, QD
     Route: 048

REACTIONS (10)
  - ALANINE AMINOTRANSFERASE INCREASED [None]
  - ANOREXIA [None]
  - ASPARTATE AMINOTRANSFERASE INCREASED [None]
  - BLOOD GLUCOSE INCREASED [None]
  - DIABETES MELLITUS [None]
  - DRY MOUTH [None]
  - FATIGUE [None]
  - HEPATIC ENZYME INCREASED [None]
  - MENTAL STATUS CHANGES [None]
  - SLEEP DISORDER [None]
